FAERS Safety Report 6193357-5 (Version None)
Quarter: 2009Q2

REPORT INFORMATION
  Report Type: 
  Country: None (occurrence: None)
  Receive Date: 20090518
  Receipt Date: 20090509
  Transmission Date: 20091009
  Serious: Yes (Other)
  Sender: FDA-Public Use
  Company Number: US-JNJFOC-20090502637

PATIENT
  Sex: Male
  Weight: 81.65 kg

DRUGS (4)
  1. SIMPLY SLEEP NIGHTTIME [Suspect]
     Indication: SLEEP DISORDER
     Route: 048
  2. TRIAMTERENE W/ HYDROCHLOROTHIAZIDE [Concomitant]
  3. PRAVASTATIN [Concomitant]
  4. METFORMIN HCL [Concomitant]

REACTIONS (6)
  - DIZZINESS [None]
  - FALL [None]
  - FEELING ABNORMAL [None]
  - INITIAL INSOMNIA [None]
  - LOSS OF CONSCIOUSNESS [None]
  - SOMNOLENCE [None]
